FAERS Safety Report 6763994-5 (Version None)
Quarter: 2010Q2

REPORT INFORMATION
  Report Type: 
  Country: None (occurrence: None)
  Receive Date: 20100610
  Receipt Date: 20100601
  Transmission Date: 20101027
  Serious: Yes (Other)
  Sender: FDA-Public Use
  Company Number: US-JNJFOC-20100600756

PATIENT
  Age: 49 Year
  Sex: Female
  Weight: 58.06 kg

DRUGS (1)
  1. ARESTIN [Suspect]
     Indication: PERIODONTAL DISEASE
     Route: 048

REACTIONS (3)
  - DERMATITIS CONTACT [None]
  - EYE SWELLING [None]
  - OCULAR HYPERAEMIA [None]
